FAERS Safety Report 7457432 (Version 4)
Quarter: 2013Q2

REPORT INFORMATION
  Report Type: Spontaneous
  Country: JP (occurrence: JP)
  Receive Date: 20100707
  Receipt Date: 20130613
  Transmission Date: 20140414
  Serious: Yes (Death, Life-Threatening, Other)
  Sender: FDA-Public Use
  Company Number: JP-ROCHE-712092

PATIENT
  Age: 9 Year
  Sex: Female

DRUGS (3)
  1. AVASTIN [Suspect]
     Indication: BRAIN STEM GLIOMA
     Dosage: NOTE: DOSAGE IS UNCERTAIN
     Route: 041
     Dates: start: 20090608, end: 20090831
  2. TEMODAL [Suspect]
     Indication: BRAIN STEM GLIOMA
     Route: 048
     Dates: start: 20090119, end: 20090808
  3. TOPOTECIN [Concomitant]
     Indication: BRAIN STEM GLIOMA
     Dosage: NOTE: DOSAGE IS UNCERTAIN
     Route: 041
     Dates: start: 20090608, end: 20090831

REACTIONS (5)
  - Disease progression [Fatal]
  - Posterior reversible encephalopathy syndrome [Not Recovered/Not Resolved]
  - Epilepsy [Unknown]
  - Lymphocyte count decreased [Not Recovered/Not Resolved]
  - Hypertension [Not Recovered/Not Resolved]
